FAERS Safety Report 7959149-9 (Version None)
Quarter: 2011Q4

REPORT INFORMATION
  Report Type: 
  Country: None (occurrence: None)
  Receive Date: 20111206
  Receipt Date: 20111124
  Transmission Date: 20120403
  Serious: Yes (Life-Threatening, Hospitalization)
  Sender: FDA-Public Use
  Company Number: FR-ELI_LILLY_AND_COMPANY-FR201111007553

PATIENT
  Sex: Female

DRUGS (6)
  1. ARESTAL [Concomitant]
     Dosage: UNK
     Route: 048
     Dates: end: 20110916
  2. PROZAC [Suspect]
     Dosage: 20 MG, QD
     Route: 048
     Dates: end: 20110916
  3. NOCTAMIDE [Concomitant]
     Dosage: 3 MG, QD
     Route: 048
     Dates: end: 20110916
  4. ATORVASTATIN CALCIUM [Concomitant]
     Dosage: 40 MG, QD
     Route: 048
     Dates: end: 20110927
  5. ALPRAZOLAM [Concomitant]
     Dosage: 0.25 MG, BID
     Route: 048
     Dates: end: 20110916
  6. NAPHAZOLINE HCL [Concomitant]
     Dosage: UNK
     Route: 048
     Dates: end: 20110916

REACTIONS (2)
  - INTERSTITIAL LUNG DISEASE [None]
  - ACUTE RESPIRATORY DISTRESS SYNDROME [None]
